FAERS Safety Report 6694842-X (Version None)
Quarter: 2010Q2

REPORT INFORMATION
  Report Type: 
  Country: None (occurrence: None)
  Receive Date: 20100423
  Receipt Date: 20100419
  Transmission Date: 20101027
  Serious: Yes (Hospitalization)
  Sender: FDA-Public Use
  Company Number: FR-ASTRAZENECA-2009SE06676

PATIENT
  Age: 31479 Day
  Sex: Female

DRUGS (13)
  1. ATACAND [Suspect]
     Route: 048
     Dates: end: 20090622
  2. TEMERIT [Suspect]
     Route: 048
  3. LEVOTHYROX [Suspect]
     Route: 048
  4. OFLOCET [Suspect]
     Indication: STAPHYLOCOCCAL INFECTION
     Route: 048
     Dates: start: 20090610, end: 20090625
  5. RIFADIN [Suspect]
     Indication: STAPHYLOCOCCAL INFECTION
     Route: 048
     Dates: start: 20090610, end: 20090625
  6. IXPRIM [Suspect]
     Route: 048
  7. DIFFU-K [Concomitant]
  8. DIGOXIN [Concomitant]
     Dates: start: 20090617
  9. PREVISCAN [Concomitant]
     Dates: start: 20090620
  10. LORAZEPAM [Concomitant]
     Dates: start: 20090620
  11. ODRIK [Concomitant]
     Dates: start: 20090623
  12. ALDACTONE [Concomitant]
     Dates: start: 20090623
  13. CORDARONE [Concomitant]
     Dates: start: 20090624

REACTIONS (1)
  - ANAEMIA HAEMOLYTIC AUTOIMMUNE [None]
